FAERS Safety Report 23342684 (Version 1)
Quarter: 2023Q4

REPORT INFORMATION
  Report Type: Spontaneous
  Country: GR (occurrence: GR)
  Receive Date: 20231227
  Receipt Date: 20231227
  Transmission Date: 20240110
  Serious: Yes (Other)
  Sender: FDA-Public Use
  Company Number: GR-TEVA-VS-3137932

PATIENT
  Age: 68 Year

DRUGS (1)
  1. SORAFENIB [Suspect]
     Active Substance: SORAFENIB
     Indication: Albuminuria
     Route: 065

REACTIONS (1)
  - Albuminuria [Recovering/Resolving]
